FAERS Safety Report 5787148-4 (Version None)
Quarter: 2008Q2

REPORT INFORMATION
  Report Type: 
  Country: None (occurrence: None)
  Receive Date: 20080623
  Receipt Date: 20080623
  Transmission Date: 20081010
  Serious: No
  Sender: FDA-Public Use
  Company Number: None

PATIENT
  Age: 65 Year
  Sex: Female
  Weight: 70.3075 kg

DRUGS (2)
  1. COPPERTONE SUNSCREED WITH [Suspect]
     Indication: PROPHYLAXIS AGAINST SOLAR RADIATION
     Dosage: TOP - ONE USE ONLY
     Route: 061
  2. SHEERCOVER [Suspect]
     Dosage: TOP
     Route: 061
     Dates: start: 20070710, end: 20071010

REACTIONS (3)
  - EXFOLIATIVE RASH [None]
  - PRURITUS [None]
  - RASH ERYTHEMATOUS [None]
